FAERS Safety Report 25470719 (Version 1)
Quarter: 2025Q2

REPORT INFORMATION
  Report Type: Spontaneous
  Country: US (occurrence: US)
  Receive Date: 20250624
  Receipt Date: 20250624
  Transmission Date: 20250717
  Serious: No
  Sender: SANOFI AVENTIS
  Company Number: US-SANOFI-02563095

PATIENT

DRUGS (2)
  1. DUPIXENT [Suspect]
     Active Substance: DUPILUMAB
     Indication: Chronic rhinosinusitis with nasal polyps
  2. DUPIXENT [Suspect]
     Active Substance: DUPILUMAB

REACTIONS (2)
  - Rosacea [Unknown]
  - Impaired quality of life [Unknown]
